FAERS Safety Report 8132091-9 (Version None)
Quarter: 2012Q1

REPORT INFORMATION
  Report Type: 
  Country: None (occurrence: None)
  Receive Date: 20120131
  Receipt Date: 20120120
  Transmission Date: 20120608
  Serious: Yes (Hospitalization)
  Sender: FDA-Public Use
  Company Number: 2012030867

PATIENT
  Age: 26 Year
  Sex: Female

DRUGS (3)
  1. PRIVIGEN [Suspect]
     Indication: SUSAC'S SYNDROME
     Dosage: 60 G TOTAL,   60 GM X2, 60 G TOTAL, INTRAVENOUS (NOT OTHERWISE S
     Route: 042
     Dates: start: 20111229, end: 20111230
  2. PRIVIGEN [Suspect]
     Indication: SUSAC'S SYNDROME
     Dosage: 60 G TOTAL,   60 GM X2, 60 G TOTAL, INTRAVENOUS (NOT OTHERWISE S
     Route: 042
     Dates: start: 20111229, end: 20111230
  3. PRIVIGEN [Suspect]

REACTIONS (9)
  - HAEMOLYSIS [None]
  - BLOOD LACTATE DEHYDROGENASE INCREASED [None]
  - OFF LABEL USE [None]
  - HAEMOGLOBIN DECREASED [None]
  - RETICULOCYTE COUNT INCREASED [None]
  - POLYCHROMASIA [None]
  - HAPTOGLOBIN DECREASED [None]
  - BLOOD BILIRUBIN INCREASED [None]
  - RED BLOOD CELL SPHEROCYTES PRESENT [None]
